FAERS Safety Report 4544719-0 (Version None)
Quarter: 2005Q1

REPORT INFORMATION
  Report Type: 
  Country: None (occurrence: None)
  Receive Date: 20050103
  Receipt Date: 20050103
  Transmission Date: 20050727
  Serious: Yes (Life-Threatening)
  Sender: FDA-Public Use
  Company Number: None

PATIENT
  Age: 83 Year
  Sex: Male
  Weight: 57.1079 kg

DRUGS (6)
  1. TAMIFLU [Suspect]
     Indication: INFLUENZA
     Dosage: 75MG  TWICE A DAY ORAL
     Route: 048
     Dates: start: 20041225, end: 20041228
  2. DILTIAZEM [Concomitant]
  3. ACETAMINOPHEN [Concomitant]
  4. ISOSORBIDE DINITRATE [Concomitant]
  5. DIGOXIN [Concomitant]
  6. MULTI-VITAMIN [Concomitant]

REACTIONS (2)
  - CONDITION AGGRAVATED [None]
  - PLATELET COUNT DECREASED [None]
